FAERS Safety Report 8884470 (Version 1)
Quarter: 2012Q4

REPORT INFORMATION
  Report Type: 
  Country: US (occurrence: US)
  Receive Date: 20121104
  Receipt Date: 20121104
  Transmission Date: 20130627
  Serious: Yes (Other)
  Sender: FDA-Public Use
  Company Number: PHHY2012US098200

PATIENT
  Sex: Female

DRUGS (28)
  1. GILENYA [Suspect]
     Indication: MULTIPLE SCLEROSIS
     Dosage: 0.5 mg, QD
     Route: 048
     Dates: start: 20120217
  2. FAMPRIDINE [Concomitant]
  3. ZOLPIDEM [Concomitant]
  4. TOPIRAMATE [Concomitant]
  5. RELPAX [Concomitant]
  6. OXYCODONE [Concomitant]
  7. OMEPRAZOLE [Concomitant]
  8. POTASSIUM CHLORIDE [Concomitant]
  9. METHOCARBAMOL [Concomitant]
  10. ADVAIR [Concomitant]
  11. ALBUTEROL [Concomitant]
  12. DOXEPIN [Concomitant]
  13. FUROSEMIDE [Concomitant]
  14. LEVOTHYROXINE [Concomitant]
  15. PROAIR HFA [Concomitant]
  16. KLONOPIN [Concomitant]
  17. PROTONIX [Concomitant]
  18. NORTRIPTYLINE [Concomitant]
  19. POTASSIUM [Concomitant]
  20. LASIX [Concomitant]
  21. ARICEPT [Concomitant]
  22. AMBIEN [Concomitant]
  23. NORFLEX [Concomitant]
  24. SPIRONOLACTONE [Concomitant]
  25. RAPAFLO [Concomitant]
  26. LYRICA [Concomitant]
  27. FOLIC ACID [Concomitant]
  28. BACLOFEN [Concomitant]

REACTIONS (5)
  - Fall [Unknown]
  - Tongue biting [Unknown]
  - Loss of consciousness [Unknown]
  - Memory impairment [Unknown]
  - Visual acuity reduced [Unknown]
